FAERS Safety Report 6919101-9 (Version None)
Quarter: 2010Q3

REPORT INFORMATION
  Report Type: 
  Country: None (occurrence: None)
  Receive Date: 20100811
  Receipt Date: 20100804
  Transmission Date: 20110219
  Serious: Yes (Hospitalization, Other)
  Sender: FDA-Public Use
  Company Number: US-JNJCH-2007078258

PATIENT
  Sex: Female
  Weight: 53.5 kg

DRUGS (2)
  1. ZYRTEC-D 12 HOUR [Suspect]
     Indication: SEASONAL ALLERGY
     Route: 065
  2. ALL OTHER THERAPEUTIC PRODUCTS [Concomitant]
     Route: 065

REACTIONS (4)
  - LUNG NEOPLASM MALIGNANT [None]
  - PNEUMONIA [None]
  - SEPSIS [None]
  - SMEAR CERVIX ABNORMAL [None]
